FAERS Safety Report 10587758 (Version 1)
Quarter: 2014Q4

REPORT INFORMATION
  Report Type: Spontaneous
  Country: US (occurrence: US)
  Receive Date: 20141117
  Receipt Date: 20141117
  Transmission Date: 20150529
  Serious: No
  Sender: FDA-Public Use
  Company Number: US-BAYER-2014-169745

PATIENT
  Age: 88 Year
  Sex: Male
  Weight: 82 kg

DRUGS (1)
  1. ALEVE [Suspect]
     Active Substance: NAPROXEN SODIUM
     Indication: BACK PAIN
     Dosage: 2 DF, PRN
     Route: 048

REACTIONS (1)
  - Expired product administered [None]

NARRATIVE: CASE EVENT DATE: 201409
